FAERS Safety Report 7440173-X (Version None)
Quarter: 2011Q2

REPORT INFORMATION
  Report Type: 
  Country: None (occurrence: None)
  Receive Date: 20110427
  Receipt Date: 20110405
  Transmission Date: 20111010
  Serious: Yes (Hospitalization)
  Sender: FDA-Public Use
  Company Number: FR-PFIZER INC-2006146150

PATIENT
  Age: 90 Year
  Sex: Female

DRUGS (12)
  1. INIPOMP [Suspect]
     Dosage: 1 DF,INTERVAL: EVERY DAY
     Route: 048
     Dates: end: 20060615
  2. DEROXAT [Suspect]
     Dosage: INTERVAL: EVERY DAY
     Route: 048
     Dates: start: 20060524, end: 20060614
  3. FORLAX [Suspect]
     Dosage: 1 DF DAILY
     Route: 048
     Dates: end: 20060615
  4. VASTAREL [Concomitant]
     Dosage: 1 DF TID
  5. FLAGYL COMP [Concomitant]
     Dates: start: 20060614
  6. PLAVIX [Concomitant]
  7. MODURETIC 5-50 [Suspect]
     Dosage: 1/2 DF
     Route: 048
     Dates: end: 20060615
  8. BUFLOMEDIL [Suspect]
     Dosage: IN THE MORNING AND EVENING
     Route: 048
     Dates: end: 20060615
  9. CLAMOXYL [Concomitant]
     Dates: start: 20060614
  10. AMLODIPINE BESYLATE [Suspect]
     Dosage: INTERVAL: EVERY DAY
     Route: 048
  11. XALATAN [Concomitant]
     Route: 031
  12. LEXOMIL [Concomitant]

REACTIONS (1)
  - HYPONATRAEMIA [None]
